FAERS Safety Report 10958356 (Version 1)
Quarter: 2015Q1

REPORT INFORMATION
  Report Type: Report from Study
  Country: BR (occurrence: BR)
  Receive Date: 20150326
  Receipt Date: 20150326
  Transmission Date: 20150721
  Serious: Yes (Other)
  Sender: FDA-Public Use
  Company Number: BR-ABBVIE-15K-020-1365415-00

PATIENT
  Age: 29 Year
  Sex: Female
  Weight: 62 kg

DRUGS (3)
  1. HUMIRA [Suspect]
     Active Substance: ADALIMUMAB
     Indication: ANKYLOSING SPONDYLITIS
     Route: 058
     Dates: start: 201210, end: 20150317
  2. IODINE [Suspect]
     Active Substance: IODINE
     Indication: PRODUCT USED FOR UNKNOWN INDICATION
     Route: 065
  3. DESOGESTREL + ETINILESTRADIOL [Concomitant]
     Indication: MENSTRUATION IRREGULAR
     Route: 048
     Dates: start: 2009

REACTIONS (5)
  - Dermatitis allergic [Recovered/Resolved]
  - Iodine allergy [Recovered/Resolved]
  - Allergic oedema [Recovered/Resolved]
  - Urinary tract infection [Not Recovered/Not Resolved]
  - Immunodeficiency [Unknown]

NARRATIVE: CASE EVENT DATE: 201502
